FAERS Safety Report 15299382 (Version 1)
Quarter: 2018Q3

REPORT INFORMATION
  Report Type: Spontaneous
  Country: US (occurrence: US)
  Receive Date: 20180808
  Receipt Date: 20180808
  Transmission Date: 20181010
  Serious: No
  Sender: FDA-Public Use
  Company Number: None

PATIENT
  Age: 7 Year
  Sex: Male
  Weight: 22.68 kg

DRUGS (1)
  1. METHYLPHENIDATE ER [Suspect]
     Active Substance: METHYLPHENIDATE
     Indication: ATTENTION DEFICIT/HYPERACTIVITY DISORDER
     Route: 051
     Dates: start: 20180804, end: 20180808

REACTIONS (4)
  - Product substitution issue [None]
  - Abnormal behaviour [None]
  - Impulsive behaviour [None]
  - Drug ineffective [None]

NARRATIVE: CASE EVENT DATE: 20180808
